FAERS Safety Report 9828392 (Version 1)
Quarter: 2014Q1

REPORT INFORMATION
  Report Type: Spontaneous
  Country: US (occurrence: US)
  Receive Date: 20140117
  Receipt Date: 20140117
  Transmission Date: 20141002
  Serious: Yes (Other)
  Sender: FDA-Public Use
  Company Number: US-ACTAVIS-2014-00147

PATIENT
  Age: 76 Year
  Sex: Male

DRUGS (4)
  1. FENTANYL UNKNOWN STRENGTH (WATSON LABORATORIES) [Suspect]
     Indication: SEDATIVE THERAPY
     Dosage: 150 ?G, TOTAL
     Route: 042
  2. FENTANYL UNKNOWN STRENGTH (WATSON LABORATORIES) [Interacting]
     Indication: ANALGESIC THERAPY
     Dosage: 100 ?G, TOTAL
     Route: 042
  3. MIDAZOLAM (UNKNOWN) [Interacting]
     Indication: SEDATIVE THERAPY
     Dosage: 4 MG, TOTAL
     Route: 042
  4. MIDAZOLAM (UNKNOWN) [Interacting]
     Indication: ANALGESIC THERAPY
     Dosage: 1 MG, TOTAL
     Route: 042

REACTIONS (6)
  - Muscle rigidity [Recovered/Resolved]
  - Hypoventilation [Recovered/Resolved]
  - Hypertension [Recovered/Resolved]
  - Oxygen saturation decreased [Recovered/Resolved]
  - Loss of consciousness [Recovered/Resolved]
  - Drug interaction [Recovered/Resolved]
